FAERS Safety Report 7960919-1 (Version None)
Quarter: 2011Q4

REPORT INFORMATION
  Report Type: 
  Country: None (occurrence: None)
  Receive Date: 20111121
  Receipt Date: 20111019
  Transmission Date: 20120403
  Serious: No
  Sender: FDA-Public Use
  Company Number: 1000024813

PATIENT
  Age: 67 Year
  Sex: Female

DRUGS (6)
  1. TOPROL-XL [Concomitant]
  2. NAPROXEN [Concomitant]
  3. VIIBRYD [Suspect]
     Indication: DEPRESSION
     Dosage: 10 MG (10 MG, 1 IN 1 D), ORAL
     Route: 048
     Dates: start: 20111013
  4. PRILOSEC (OMEPRAZOLE) (OMEPRAZOLE) [Concomitant]
  5. ACTOPLUS MET (MOPADAY) (MOPADAY) [Concomitant]
  6. AVALIDE (KARVEA HCT) (KARVEA HCT) [Concomitant]

REACTIONS (3)
  - CRYING [None]
  - ANXIETY [None]
  - AGITATION [None]
